FAERS Safety Report 14079003 (Version 1)
Quarter: 2017Q4

REPORT INFORMATION
  Report Type: Spontaneous
  Country: US (occurrence: US)
  Receive Date: 20171012
  Receipt Date: 20171012
  Transmission Date: 20180321
  Serious: No
  Sender: FDA-Public Use
  Company Number: US-MYLANLABS-2017M1024612

PATIENT
  Sex: Male
  Weight: 180 kg

DRUGS (4)
  1. FENTANYL TRANSDERMAL SYSTEM [Suspect]
     Active Substance: FENTANYL
     Indication: NECK PAIN
  2. GABAPENTIN. [Concomitant]
     Active Substance: GABAPENTIN
     Indication: NEURALGIA
     Dosage: 600 MG, BID
  3. VICODIN [Concomitant]
     Active Substance: ACETAMINOPHEN\HYDROCODONE BITARTRATE
     Indication: BACK PAIN
     Dosage: UNK, TID
  4. FENTANYL TRANSDERMAL SYSTEM [Suspect]
     Active Substance: FENTANYL
     Indication: BACK PAIN
     Dosage: 75 ?G, QH, CHANGE Q48H
     Route: 062
     Dates: start: 201610

REACTIONS (5)
  - Abdominal pain [Not Recovered/Not Resolved]
  - Feeling abnormal [Unknown]
  - Drug effect decreased [Not Recovered/Not Resolved]
  - Product adhesion issue [Unknown]
  - Withdrawal syndrome [Not Recovered/Not Resolved]
